FAERS Safety Report 5202744-0 (Version None)
Quarter: 2006Q4

REPORT INFORMATION
  Report Type: 
  Country: None (occurrence: None)
  Receive Date: 20061018
  Receipt Date: 20050929
  Transmission Date: 20070319
  Serious: Yes (Other)
  Sender: FDA-Public Use
  Company Number: PHEH2005US10923

PATIENT
  Age: 40 Year
  Sex: Female

DRUGS (1)
  1. ZOMETA [Suspect]
     Indication: BREAST CANCER METASTATIC
     Dosage: IV INFUSION Q28DAYS, INTRAVENOUS
     Route: 042
     Dates: start: 20030101

REACTIONS (1)
  - RED BLOOD CELL COUNT DECREASED [None]
